FAERS Safety Report 23893345 (Version 1)
Quarter: 2024Q2

REPORT INFORMATION
  Report Type: Spontaneous
  Country: FR (occurrence: FR)
  Receive Date: 20240524
  Receipt Date: 20240524
  Transmission Date: 20240716
  Serious: Yes (Hospitalization)
  Sender: FDA-Public Use
  Company Number: None

PATIENT
  Age: 36 Year
  Sex: Male

DRUGS (5)
  1. ALPRAZOLAM [Suspect]
     Active Substance: ALPRAZOLAM
     Indication: Product used for unknown indication
     Dosage: ALPRAZOLAM 0,5MG CP : 1,5MG/J
     Route: 048
  2. ALCOHOL [Suspect]
     Active Substance: ALCOHOL
     Indication: Product used for unknown indication
     Dosage: VODKA QUOTIDIENNE
     Route: 048
     Dates: start: 202206
  3. COCAINE [Suspect]
     Active Substance: COCAINE
     Indication: Product used for unknown indication
     Dosage: 1 FOIS/J
     Route: 065
     Dates: start: 2016
  4. ACETAMINOPHEN\CODEINE PHOSPHATE [Suspect]
     Active Substance: ACETAMINOPHEN\CODEINE PHOSPHATE
     Indication: Product used for unknown indication
     Dosage: PLUSIEURS CP /JOUR
     Route: 048
     Dates: start: 202206
  5. BROMHEXINE HYDROCHLORIDE\GUAIFENESIN\MENTHOL\TERBUTALINE SULFATE [Suspect]
     Active Substance: BROMHEXINE HYDROCHLORIDE\GUAIFENESIN\MENTHOL\TERBUTALINE SULFATE
     Indication: Product used for unknown indication
     Route: 055
     Dates: start: 2002

REACTIONS (6)
  - Cardio-respiratory arrest [Recovered/Resolved]
  - Hepatic cytolysis [Recovering/Resolving]
  - Tachycardia [Recovered/Resolved]
  - Drug abuse [Not Recovered/Not Resolved]
  - Poisoning [Recovered/Resolved]
  - Coma [Recovered/Resolved]

NARRATIVE: CASE EVENT DATE: 20221222
